FAERS Safety Report 21825504 (Version 1)
Quarter: 2023Q1

REPORT INFORMATION
  Report Type: 
  Country: None (occurrence: None)
  Receive Date: 20230105
  Receipt Date: 20230105
  Transmission Date: 20230417
  Serious: Yes (Other)
  Sender: FDA-Public Use
  Company Number: None

PATIENT
  Age: 21 Year
  Sex: Male

DRUGS (1)
  1. MYORISAN [Suspect]
     Active Substance: ISOTRETINOIN

REACTIONS (9)
  - Internal haemorrhage [None]
  - Haematochezia [None]
  - Depression [None]
  - Mood altered [None]
  - Gastrooesophageal reflux disease [None]
  - Head discomfort [None]
  - Visual impairment [None]
  - Night blindness [None]
  - Dry skin [None]

NARRATIVE: CASE EVENT DATE: 20221101
